FAERS Safety Report 4466226-6 (Version None)
Quarter: 2004Q3

REPORT INFORMATION
  Report Type: 
  Country: None (occurrence: None)
  Receive Date: 20040930
  Receipt Date: 20040916
  Transmission Date: 20050211
  Serious: Yes (Hospitalization)
  Sender: FDA-Public Use
  Company Number: 2004-SW-00285SW

PATIENT
  Age: 83 Year
  Sex: Male

DRUGS (5)
  1. PERSANTIN DEPOT 200 MG (DIPYRIDAMOLE) [Suspect]
     Indication: TRANSIENT ISCHAEMIC ATTACK
     Dosage: 400 MG (200 MG, NOT REPORTED), PO
     Route: 048
     Dates: start: 20040218
  2. PANTOLOC (PANTOPRAZOLE SODIUM) (TAR) [Suspect]
     Indication: ABDOMINAL PAIN UPPER
     Dosage: 20 MG (20 MG, NOT REPORTED), PO
     Route: 048
     Dates: start: 20040215
  3. GINKO (CASCARA) [Suspect]
     Dates: start: 20040101, end: 20040317
  4. TROMBYL (ACETYLSALICYLIC ACID) (TA) [Concomitant]
  5. DIOVAN COMP (CO0DIOVAN) (DR) [Concomitant]

REACTIONS (6)
  - CHOLESTASIS [None]
  - DIARRHOEA [None]
  - HEADACHE [None]
  - INFLAMMATION [None]
  - NAUSEA [None]
  - PYREXIA [None]
